FAERS Safety Report 17408132 (Version 2)
Quarter: 2020Q1

REPORT INFORMATION
  Report Type: Spontaneous
  Country: US (occurrence: US)
  Receive Date: 20200212
  Receipt Date: 20200214
  Transmission Date: 20200409
  Serious: Yes (Hospitalization)
  Sender: FDA-Public Use
  Company Number: US-ROCHE-2481369

PATIENT
  Sex: Male

DRUGS (6)
  1. ZELBORAF [Suspect]
     Active Substance: VEMURAFENIB
     Dosage: EVERY 12 HOURS BY MOUTH
     Route: 048
     Dates: start: 20190828
  2. COTELLIC [Suspect]
     Active Substance: COBIMETINIB
     Route: 048
     Dates: start: 20190106
  3. ZELBORAF [Suspect]
     Active Substance: VEMURAFENIB
     Indication: METASTASIS
     Route: 048
     Dates: start: 20190829
  4. COTELLIC [Suspect]
     Active Substance: COBIMETINIB
     Indication: METASTASIS
     Route: 048
     Dates: start: 20190829
  5. COTELLIC [Suspect]
     Active Substance: COBIMETINIB
     Route: 048
     Dates: start: 20190828
  6. ZELBORAF [Suspect]
     Active Substance: VEMURAFENIB
     Route: 048
     Dates: start: 20190201

REACTIONS (8)
  - Herpes zoster [Unknown]
  - Skin irritation [Unknown]
  - Cellulitis [Unknown]
  - Off label use [Unknown]
  - Intentional product use issue [Unknown]
  - Fluid retention [Unknown]
  - Swelling [Unknown]
  - Diarrhoea [Unknown]
